FAERS Safety Report 7513947-4 (Version None)
Quarter: 2011Q2

REPORT INFORMATION
  Report Type: 
  Country: None (occurrence: None)
  Receive Date: 20110531
  Receipt Date: 20081105
  Transmission Date: 20111010
  Serious: Yes (Hospitalization, Other)
  Sender: FDA-Public Use
  Company Number: US-BAYER-2011-007431

PATIENT
  Age: 60 Year
  Sex: Male
  Weight: 130.61 kg

DRUGS (28)
  1. NORVASC [Concomitant]
     Dosage: 5 MG, QD
     Route: 048
  2. HUMULIN [INSULIN HUMAN] [Concomitant]
     Dosage: AS DIRECTED
     Route: 058
  3. TOPROL-XL [Concomitant]
     Dosage: 25 MG, QD
     Route: 048
  4. LIDOCAINE [Concomitant]
     Dosage: 100 MG, UNK
     Route: 042
     Dates: start: 20050401
  5. LASIX [Concomitant]
     Route: 048
  6. AMIODARONE HCL [Concomitant]
     Dosage: UNK
     Route: 042
     Dates: start: 20050401
  7. NITROGLYCERIN [Concomitant]
     Dosage: UNK
     Route: 042
     Dates: start: 20050401
  8. TRASYLOL [Suspect]
     Indication: CORONARY ARTERY BYPASS
     Dosage: 200 ML PRIME, LOADING DOSE NOT DOCUMENTED
     Route: 042
     Dates: start: 20050401, end: 20050401
  9. ADVIL LIQUI-GELS [Concomitant]
     Route: 048
  10. INSULIN [Concomitant]
     Route: 042
  11. PROTAMINE SULFATE [Concomitant]
     Dosage: UNK
     Route: 042
     Dates: start: 20050401
  12. DOBUTAMINE HYDROCHLORIDE [Concomitant]
     Dosage: UNK
     Route: 042
     Dates: start: 20050401
  13. HEPARIN [Concomitant]
     Dosage: 10000 U, UNK
     Route: 042
     Dates: start: 20050401
  14. ALEVE (CAPLET) [Concomitant]
     Route: 048
  15. AMARYL [Concomitant]
  16. LISINOPRIL [Concomitant]
     Dosage: 40 MG, QD
     Route: 048
  17. INSULIN [Concomitant]
     Dosage: 40 U, UNK
     Route: 042
     Dates: start: 20050401
  18. ZINACEF [Concomitant]
     Dosage: UNK
     Route: 042
     Dates: start: 20050401
  19. MORPHINE [Concomitant]
     Dosage: UNK
     Route: 042
     Dates: start: 20050401
  20. LASIX [Concomitant]
     Dosage: 20 MG, UNK
     Route: 042
     Dates: start: 20050401
  21. LIPITOR [Concomitant]
     Dosage: 10000 U, UNK
     Route: 042
     Dates: start: 20050401
  22. PROPOFOL [Concomitant]
     Dosage: UNK
     Route: 042
     Dates: start: 20050401
  23. IBUPROFEN [Concomitant]
     Route: 048
  24. HYDROCHLOROTHIAZIDE [Concomitant]
     Route: 048
  25. VERSED [Concomitant]
     Dosage: 2 MG, UNK
     Route: 042
     Dates: start: 20050401
  26. SUFENTA PRESERVATIVE FREE [Concomitant]
     Dosage: UNK
     Route: 042
     Dates: start: 20050401
  27. HEPARIN [Concomitant]
     Dosage: 50000 U, UNK
     Route: 042
     Dates: start: 20050401
  28. MANNITOL [Concomitant]
     Dosage: 50 G,
     Route: 042
     Dates: start: 20050401

REACTIONS (8)
  - UNEVALUABLE EVENT [None]
  - ANXIETY [None]
  - INJURY [None]
  - FEAR [None]
  - STRESS [None]
  - PAIN [None]
  - RENAL FAILURE [None]
  - EMOTIONAL DISTRESS [None]
